FAERS Safety Report 5840213-5 (Version None)
Quarter: 2008Q3

REPORT INFORMATION
  Report Type: 
  Country: None (occurrence: None)
  Receive Date: 20080811
  Receipt Date: 20080805
  Transmission Date: 20090109
  Serious: Yes (Other)
  Sender: FDA-Public Use
  Company Number: US-GENENTECH-265832

PATIENT
  Sex: Male
  Weight: 86.168 kg

DRUGS (1)
  1. RAPTIVA [Suspect]
     Indication: PSORIASIS
     Dosage: 0.9 ML, 1/WEEK
     Route: 058
     Dates: start: 20080707, end: 20080808

REACTIONS (1)
  - FACIAL PALSY [None]
